FAERS Safety Report 4383589-0 (Version None)
Quarter: 2004Q2

REPORT INFORMATION
  Report Type: 
  Country: None (occurrence: None)
  Receive Date: 20040618
  Receipt Date: 20040601
  Transmission Date: 20050107
  Serious: Yes (Hospitalization, Other)
  Sender: FDA-Public Use
  Company Number: USA040669019

PATIENT
  Age: 75 Year
  Sex: Female

DRUGS (1)
  1. EVISTA [Suspect]
     Indication: OSTEOPOROSIS
     Dates: start: 20020101

REACTIONS (5)
  - FALL [None]
  - GAIT DISTURBANCE [None]
  - JOINT ADHESION [None]
  - LIMB INJURY [None]
  - NAUSEA [None]
